FAERS Safety Report 8824799 (Version 1)
Quarter: 2012Q4

REPORT INFORMATION
  Report Type: 
  Country: AU (occurrence: AU)
  Receive Date: 20121004
  Receipt Date: 20121004
  Transmission Date: 20130627
  Serious: Yes (Other)
  Sender: FDA-Public Use
  Company Number: AU-ELI_LILLY_AND_COMPANY-AU201210000766

PATIENT
  Age: 70 Year
  Sex: Female

DRUGS (1)
  1. EFFIENT [Suspect]
     Dosage: 10 mg, qd
     Route: 065
     Dates: start: 2011

REACTIONS (3)
  - Cerebrovascular accident [Unknown]
  - Contusion [Unknown]
  - Intentional drug misuse [Unknown]
